FAERS Safety Report 8027993-8 (Version None)
Quarter: 2012Q1

REPORT INFORMATION
  Report Type: 
  Country: None (occurrence: None)
  Receive Date: 20120106
  Receipt Date: 20120104
  Transmission Date: 20120608
  Serious: Yes (Hospitalization)
  Sender: FDA-Public Use
  Company Number: FR-PFIZER INC-2012001665

PATIENT
  Age: 39 Year
  Sex: Male

DRUGS (2)
  1. PAROXETINE HCL [Suspect]
     Indication: DEPRESSION
     Dosage: UNK
     Route: 048
     Dates: start: 20110701
  2. XANAX [Suspect]
     Indication: DEPRESSION

REACTIONS (11)
  - MYDRIASIS [None]
  - RHABDOMYOLYSIS [None]
  - DISTURBANCE IN ATTENTION [None]
  - INTENTIONAL DRUG MISUSE [None]
  - HYPERHIDROSIS [None]
  - MYALGIA [None]
  - SEROTONIN SYNDROME [None]
  - SOMNOLENCE [None]
  - HYPERREFLEXIA [None]
  - TACHYCARDIA [None]
  - CONFUSIONAL STATE [None]
